FAERS Safety Report 6089076-6 (Version None)
Quarter: 2009Q1

REPORT INFORMATION
  Report Type: 
  Country: None (occurrence: None)
  Receive Date: 20090219
  Receipt Date: 20090219
  Transmission Date: 20090719
  Serious: Yes (Other)
  Sender: FDA-Public Use
  Company Number: None

PATIENT
  Sex: Female
  Weight: 73.4827 kg

DRUGS (2)
  1. VIVELLE-DOT [Suspect]
     Indication: HORMONE REPLACEMENT THERAPY
     Dosage: 0.1 MG/DAY TWICE WEEKLY TRANSDERM
     Route: 062
     Dates: start: 20090206
  2. VIVELLE-DOT [Suspect]
     Indication: HORMONE REPLACEMENT THERAPY
     Dosage: 0.1 MG/DAY TWICE WEEKLY TRANSDERM
     Route: 062
     Dates: start: 20090209

REACTIONS (6)
  - APPLICATION SITE PAIN [None]
  - APPLICATION SITE VESICLES [None]
  - BODY TEMPERATURE INCREASED [None]
  - FLUSHING [None]
  - NIGHT SWEATS [None]
  - PAIN IN EXTREMITY [None]
